FAERS Safety Report 6538720-5 (Version None)
Quarter: 2010Q1

REPORT INFORMATION
  Report Type: 
  Country: None (occurrence: None)
  Receive Date: 20100114
  Receipt Date: 20100114
  Transmission Date: 20100710
  Serious: No
  Sender: FDA-Public Use
  Company Number: None

PATIENT
  Sex: Female
  Weight: 86.1834 kg

DRUGS (1)
  1. ZICAM NASAL SPRAY/SWABS N/A N/A [Suspect]
     Indication: NASOPHARYNGITIS
     Dates: start: 20080101, end: 20091231

REACTIONS (1)
  - ANOSMIA [None]
